FAERS Safety Report 4889005-4 (Version None)
Quarter: 2005Q4

REPORT INFORMATION
  Report Type: 
  Country: None (occurrence: None)
  Receive Date: 20051215
  Receipt Date: 20050322
  Transmission Date: 20060501
  Serious: Yes (Hospitalization)
  Sender: FDA-Public Use
  Company Number: 2005048492

PATIENT
  Age: 83 Year
  Sex: Female
  Weight: 63.5036 kg

DRUGS (1)
  1. BEXTRA [Suspect]
     Indication: ARTHRITIS
     Dosage: 10 MG (10 MG, 1 IN 1 D), UNKNOWN
     Route: 065
     Dates: start: 20030901

REACTIONS (4)
  - BLOOD CREATININE INCREASED [None]
  - CHEST PAIN [None]
  - COLONIC POLYP [None]
  - PAIN [None]
